FAERS Safety Report 12869311 (Version 1)
Quarter: 2016Q4

REPORT INFORMATION
  Report Type: Spontaneous
  Country: NL (occurrence: NL)
  Receive Date: 20161021
  Receipt Date: 20161021
  Transmission Date: 20170207
  Serious: Yes (Other)
  Sender: FDA-Public Use
  Company Number: NL-AUROBINDO-AUR-APL-2013-10045

PATIENT

DRUGS (1)
  1. ALENDRONINEZUUR AUROBINDO 70 MG, TABLETTEN [Suspect]
     Active Substance: ALENDRONIC ACID
     Indication: PRODUCT USED FOR UNKNOWN INDICATION
     Dosage: 70 MG,UNK,
     Route: 065

REACTIONS (3)
  - Vision blurred [Unknown]
  - Eye discharge [Unknown]
  - Arthralgia [Unknown]
